FAERS Safety Report 9559889 (Version 2)
Quarter: 2014Q1

REPORT INFORMATION
  Report Type: Spontaneous
  Country: US (occurrence: None)
  Receive Date: 20130906
  Receipt Date: 20131205
  Transmission Date: 20141002
  Serious: Yes (Hospitalization, Other)
  Sender: FDA-Public Use
  Company Number: 163-POMAL-13074350

PATIENT
  Age: 75 Year
  Sex: Male
  Weight: 85.4 kg

DRUGS (18)
  1. POMALYST (POMALIDOMIDE) (CAPSULES) [Suspect]
     Indication: PLASMA CELL MYELOMA
     Dosage: 21 IN 28D
     Route: 048
     Dates: start: 20130701, end: 20130724
  2. DEXAMETHASONE (DEXAMETHASONE) [Concomitant]
  3. ACYCOLOVIR (ACICLOVIR) [Concomitant]
  4. OMEPRAZOLE (OMEPRAZOLE) [Concomitant]
  5. GABAPENTIN (GABAPENTIN) [Concomitant]
  6. ACETAMINOPHEN (PARACETAMOL) [Concomitant]
  7. CALCIUM CITRATE (CALCIIUM CITRATE) [Concomitant]
  8. MAGNESIUM (MAGNESIUM) [Concomitant]
  9. GLUCOSAMINE-CHONDROITIN-VITAMIN C-MINERALS (OSTEOGESIC PLUS) [Concomitant]
  10. FUROSEMIDE (FUROSEMIDE) [Concomitant]
  11. OXYCODONE (OXYCODONE) [Concomitant]
  12. LORAZEPAM (LORAZEPAM) [Concomitant]
  13. PROCHLORPERAZINE (PROCHLORPERAZINE) [Concomitant]
  14. CIPROFLOXACIN (CIPROFLOXACIN) [Concomitant]
  15. POLYETHYLENE (GLYCOL (MACROGOL) [Concomitant]
  16. METHYLSULFONYLMETHANE (METHYLSULFONYLMETHANE) [Concomitant]
  17. ASCORBIC ACID (ASCORBIC ACID) [Concomitant]
  18. ERGOCALCIFEROL (ERGOCALCIFEROL) [Concomitant]

REACTIONS (4)
  - Sepsis [None]
  - Pneumonia [None]
  - Thrombocytopenia [None]
  - Dizziness [None]
